FAERS Safety Report 8727784 (Version 2)
Quarter: 2012Q4

REPORT INFORMATION
  Report Type: Spontaneous
  Country: US (occurrence: None)
  Receive Date: 20120731
  Receipt Date: 20121001
  Transmission Date: 20130627
  Serious: Yes (Hospitalization)
  Sender: FDA-Public Use
  Company Number: UTC-021268

PATIENT
  Age: 56 Year
  Sex: Female

DRUGS (4)
  1. TYVASO [Suspect]
     Indication: COR PULMONALE CHRONIC
     Dosage: 216 MCG (54 MCG, 4 IN 1 D), INHALATION
     Route: 055
     Dates: start: 20120224
  2. TYVASO [Suspect]
     Indication: PULMONARY ARTERIAL HYPERTENSION
     Dosage: 216 MCG (54 MCG, 4 IN 1 D), INHALATION
     Route: 055
     Dates: start: 20120224
  3. TRACLEER [Concomitant]
  4. COUMADIN [Concomitant]

REACTIONS (4)
  - Haemorrhage [None]
  - Dyspnoea [None]
  - Pneumonia [None]
  - Atrial fibrillation [None]
